FAERS Safety Report 9384051 (Version 12)
Quarter: 2015Q4

REPORT INFORMATION
  Report Type: Report from Study
  Country: CA (occurrence: CA)
  Receive Date: 20130705
  Receipt Date: 20151028
  Transmission Date: 20160305
  Serious: Yes (Hospitalization, Other)
  Sender: FDA-Public Use
  Company Number: CA-ROCHE-1171842

PATIENT
  Age: 79 Year
  Sex: Male
  Weight: 67 kg

DRUGS (23)
  1. OMALIZUMAB [Suspect]
     Active Substance: OMALIZUMAB
     Route: 058
     Dates: start: 20111109
  2. OMALIZUMAB [Suspect]
     Active Substance: OMALIZUMAB
     Route: 058
     Dates: start: 20151020
  3. OMALIZUMAB [Suspect]
     Active Substance: OMALIZUMAB
     Route: 058
     Dates: start: 20130204
  4. OMALIZUMAB [Suspect]
     Active Substance: OMALIZUMAB
     Route: 058
     Dates: start: 20100527
  5. OMALIZUMAB [Suspect]
     Active Substance: OMALIZUMAB
     Route: 058
     Dates: start: 20130819
  6. OMALIZUMAB [Suspect]
     Active Substance: OMALIZUMAB
     Route: 058
     Dates: start: 20150310
  7. PREDNISONE. [Concomitant]
     Active Substance: PREDNISONE
     Indication: PRODUCT USED FOR UNKNOWN INDICATION
  8. OMALIZUMAB [Suspect]
     Active Substance: OMALIZUMAB
     Indication: ASTHMA
     Route: 058
     Dates: start: 20061211
  9. OMALIZUMAB [Suspect]
     Active Substance: OMALIZUMAB
     Route: 058
     Dates: start: 20130108
  10. OMALIZUMAB [Suspect]
     Active Substance: OMALIZUMAB
     Route: 058
     Dates: start: 20130527
  11. OMALIZUMAB [Suspect]
     Active Substance: OMALIZUMAB
     Route: 058
     Dates: start: 20131112
  12. OMALIZUMAB [Suspect]
     Active Substance: OMALIZUMAB
     Route: 058
     Dates: start: 20150113
  13. OMALIZUMAB [Suspect]
     Active Substance: OMALIZUMAB
     Route: 058
     Dates: start: 20150113
  14. OMALIZUMAB [Suspect]
     Active Substance: OMALIZUMAB
     Route: 058
  15. OMALIZUMAB [Suspect]
     Active Substance: OMALIZUMAB
     Route: 058
  16. OMALIZUMAB [Suspect]
     Active Substance: OMALIZUMAB
     Route: 058
     Dates: start: 20150630
  17. FLUDROCORTISONE [Concomitant]
     Active Substance: FLUDROCORTISONE
     Route: 065
  18. OMALIZUMAB [Suspect]
     Active Substance: OMALIZUMAB
     Route: 065
     Dates: start: 20130401
  19. OMALIZUMAB [Suspect]
     Active Substance: OMALIZUMAB
     Route: 058
  20. OMALIZUMAB [Suspect]
     Active Substance: OMALIZUMAB
     Route: 058
     Dates: start: 20110302
  21. OMALIZUMAB [Suspect]
     Active Substance: OMALIZUMAB
     Route: 058
     Dates: start: 20120917
  22. OMALIZUMAB [Suspect]
     Active Substance: OMALIZUMAB
     Route: 058
     Dates: start: 20150728
  23. CORTATE (CANADA) [Concomitant]
     Route: 065

REACTIONS (34)
  - Upper respiratory tract congestion [Unknown]
  - Cystitis [Unknown]
  - Confusional state [Unknown]
  - Hypertension [Unknown]
  - Viral infection [Not Recovered/Not Resolved]
  - Hearing impaired [Unknown]
  - Oropharyngeal pain [Unknown]
  - Blood sodium decreased [Not Recovered/Not Resolved]
  - Lung infection pseudomonal [Unknown]
  - Prostate cancer metastatic [Unknown]
  - Rhonchi [Unknown]
  - Weight decreased [Unknown]
  - Body temperature decreased [Unknown]
  - Lung neoplasm malignant [Unknown]
  - Back pain [Unknown]
  - Myocardial infarction [Unknown]
  - Lower respiratory tract infection [Unknown]
  - Pain [Unknown]
  - Urinary tract infection [Unknown]
  - Nasopharyngitis [Recovering/Resolving]
  - Abdominal discomfort [Unknown]
  - Dysphagia [Unknown]
  - Breath sounds abnormal [Unknown]
  - Prostate cancer [Unknown]
  - Atrial fibrillation [Not Recovered/Not Resolved]
  - Arterial occlusive disease [Unknown]
  - Influenza [Recovering/Resolving]
  - Influenza like illness [Unknown]
  - Chest discomfort [Unknown]
  - General physical health deterioration [Unknown]
  - Lung disorder [Unknown]
  - Systemic lupus erythematosus [Unknown]
  - Asthma [Recovering/Resolving]
  - Vomiting [Unknown]

NARRATIVE: CASE EVENT DATE: 20101202
